FAERS Safety Report 10143923 (Version 1)
Quarter: 2014Q2

REPORT INFORMATION
  Report Type: Report from Study
  Country: US (occurrence: US)
  Receive Date: 20140430
  Receipt Date: 20140430
  Transmission Date: 20141212
  Serious: Yes (Other)
  Sender: FDA-Public Use
  Company Number: US-GILEAD-2014-0100939

PATIENT
  Sex: Female

DRUGS (3)
  1. SOFOSBUVIR [Suspect]
     Indication: CHRONIC HEPATITIS C
     Dosage: 400 MG, UNK
     Route: 065
     Dates: start: 20140421
  2. RIBAVIRIN [Concomitant]
     Indication: CHRONIC HEPATITIS C
  3. LOTRIMIN                           /00212501/ [Concomitant]
     Indication: MASTITIS

REACTIONS (3)
  - Mastitis [Unknown]
  - Erythema [Unknown]
  - Breast pain [Unknown]
